FAERS Safety Report 20623927 (Version 2)
Quarter: 2022Q2

REPORT INFORMATION
  Report Type: Spontaneous
  Country: US (occurrence: US)
  Receive Date: 20220322
  Receipt Date: 20220625
  Transmission Date: 20220721
  Serious: Yes (Hospitalization)
  Sender: FDA-Public Use
  Company Number: US-TEVA-2022-US-2017859

PATIENT
  Age: 50 Year
  Sex: Female

DRUGS (14)
  1. PACLITAXEL [Suspect]
     Active Substance: PACLITAXEL
     Indication: Product used for unknown indication
     Dosage: CYCLE 2.21 OF WEEKLY PACLITAXEL AND AFTER RECEIVING 70 ML OF THE INFUSION (APPROXIMATELY 1/4 OF THE
     Route: 065
  2. PACLITAXEL [Suspect]
     Active Substance: PACLITAXEL
     Dosage: CYCLE 9.1 - WEEKLY TAXOL DAYS 8,15 Q28 DAYS WERE ADDED.
     Route: 065
     Dates: start: 2022
  3. AMBIEN [Concomitant]
     Active Substance: ZOLPIDEM TARTRATE
     Indication: Product used for unknown indication
     Dosage: 5 MG, 30 DAYS
     Route: 048
  4. DEXAMETHASONE [Concomitant]
     Active Substance: DEXAMETHASONE
     Indication: Product used for unknown indication
     Dosage: 4 MG , 30 DAYS, 2
     Route: 048
  5. ZITHROMAX [Concomitant]
     Active Substance: AZITHROMYCIN DIHYDRATE
     Indication: Product used for unknown indication
     Dosage: 250 MILLIGRAM, 5 DAYS
     Route: 048
  6. ONDANSETRON HCL [Concomitant]
     Active Substance: ONDANSETRON HYDROCHLORIDE
     Indication: Product used for unknown indication
     Dosage: 8 MG, 20 DAYS
     Route: 048
  7. ONDANSETRON HCL [Concomitant]
     Active Substance: ONDANSETRON HYDROCHLORIDE
     Dosage: 4 MG, TID 20 DAYS, 4
     Route: 048
  8. Lidocaine- prilociane [Concomitant]
     Indication: Product used for unknown indication
     Dosage: 2.5 - 2.5 %, TUD, 30 DAYS
  9. PROCHLORPERAZINE MALEATE [Concomitant]
     Active Substance: PROCHLORPERAZINE MALEATE
     Indication: Product used for unknown indication
     Dosage: 10, 30 DAYS, 1
  10. PROCHLORPERAZINE MALEATE [Concomitant]
     Active Substance: PROCHLORPERAZINE MALEATE
     Dosage: 25 MILLIGRAM, 5 DAYS
  11. LORAZEPAM [Concomitant]
     Active Substance: LORAZEPAM
     Indication: Product used for unknown indication
     Dosage: 1 MG, 30 DAYS
     Route: 048
  12. GABAPENTIN [Concomitant]
     Active Substance: GABAPENTIN
     Indication: Product used for unknown indication
     Dosage: 100 MG, 30 DAYS
     Route: 048
  13. CIPROFLOXACIN HYDROCHLORIDE [Concomitant]
     Active Substance: CIPROFLOXACIN HYDROCHLORIDE
     Indication: Product used for unknown indication
     Dosage: 500 MG, 5 DAYS
  14. Hydrocortisone- Acetaminophen [Concomitant]
     Indication: Product used for unknown indication
     Dosage: 30 DAYS

REACTIONS (10)
  - Flushing [Unknown]
  - Dyspnoea [Unknown]
  - Chest pain [Unknown]
  - Flushing [Unknown]
  - Erythema [Unknown]
  - Feeling hot [Unknown]
  - Chest discomfort [Recovered/Resolved]
  - Hypertension [Recovered/Resolved]
  - Oropharyngeal discomfort [Recovered/Resolved]
  - Anxiety [Unknown]

NARRATIVE: CASE EVENT DATE: 20220114
